FAERS Safety Report 23357616 (Version 1)
Quarter: 2023Q4

REPORT INFORMATION
  Report Type: Spontaneous
  Country: US (occurrence: None)
  Receive Date: 20231229
  Receipt Date: 20231229
  Transmission Date: 20240109
  Serious: No
  Sender: FDA-Public Use
  Company Number: None

PATIENT

DRUGS (1)
  1. ATIVAN [Suspect]
     Active Substance: LORAZEPAM

REACTIONS (2)
  - Wrong patient received product [None]
  - Wrong product administered [None]

NARRATIVE: CASE EVENT DATE: 20231007
